FAERS Safety Report 23815385 (Version 1)
Quarter: 2024Q2

REPORT INFORMATION
  Report Type: Spontaneous
  Country: FR (occurrence: FR)
  Receive Date: 20240503
  Receipt Date: 20240503
  Transmission Date: 20240716
  Serious: Yes (Other)
  Sender: FDA-Public Use
  Company Number: None

PATIENT
  Age: 35 Year
  Sex: Female
  Weight: 53 kg

DRUGS (1)
  1. ATOVAQUONE\PROGUANIL [Suspect]
     Active Substance: ATOVAQUONE\PROGUANIL
     Indication: Malaria prophylaxis
     Dosage: 1 DOSAGE FORM, QD, 1 TABLET PER DAY
     Route: 048
     Dates: start: 20240306, end: 20240320

REACTIONS (8)
  - Panic attack [Recovered/Resolved]
  - Anxiety [Recovered/Resolved]
  - Insomnia [Recovered/Resolved]
  - Abnormal dreams [Recovered/Resolved]
  - Decreased appetite [Recovered/Resolved]
  - Tachycardia [Recovered/Resolved]
  - Nausea [Recovered/Resolved]
  - Diarrhoea [Recovered/Resolved]

NARRATIVE: CASE EVENT DATE: 20240311
